FAERS Safety Report 6399365-3 (Version None)
Quarter: 2009Q4

REPORT INFORMATION
  Report Type: 
  Country: None (occurrence: None)
  Receive Date: 20091014
  Receipt Date: 20091002
  Transmission Date: 20100525
  Serious: Yes (Other)
  Sender: FDA-Public Use
  Company Number: IE-WYE-H11438409

PATIENT
  Age: 80 Year
  Sex: Female

DRUGS (1)
  1. PROTIUM [Suspect]
     Route: 048
     Dates: start: 20010606, end: 20090824

REACTIONS (1)
  - BURNING SENSATION [None]
